FAERS Safety Report 14575980 (Version 3)
Quarter: 2018Q2

REPORT INFORMATION
  Report Type: Report from Study
  Country: None (occurrence: US)
  Receive Date: 20180227
  Receipt Date: 20180613
  Transmission Date: 20180711
  Serious: Yes (Hospitalization, Other)
  Sender: FDA-Public Use
  Company Number: US-ABBVIE-18K-163-2264602-00

PATIENT
  Age: 54 Year
  Sex: Female
  Weight: 113.5 kg

DRUGS (13)
  1. PLAQUENIL [Concomitant]
     Active Substance: HYDROXYCHLOROQUINE SULFATE
     Indication: RHEUMATOID ARTHRITIS
  2. METHOTREXATE. [Concomitant]
     Active Substance: METHOTREXATE
     Indication: RHEUMATOID ARTHRITIS
  3. NAPROXEN. [Concomitant]
     Active Substance: NAPROXEN
     Indication: RHEUMATOID ARTHRITIS
  4. PRILOSEC [Concomitant]
     Active Substance: OMEPRAZOLE MAGNESIUM
     Indication: PROPHYLAXIS AGAINST GASTROINTESTINAL ULCER
  5. THYROXINE [Concomitant]
     Active Substance: LEVOTHYROXINE
     Indication: PARATHYROID DISORDER
  6. BLACK COHOSH [Concomitant]
     Active Substance: BLACK COHOSH
     Indication: HOT FLUSH
  7. FLOVENT [Concomitant]
     Active Substance: FLUTICASONE PROPIONATE
     Indication: ASTHMA
  8. VITAMIN E [Concomitant]
     Active Substance: .ALPHA.-TOCOPHEROL
     Indication: HOT FLUSH
  9. HUMIRA [Suspect]
     Active Substance: ADALIMUMAB
     Route: 058
     Dates: start: 20180202
  10. PREDNISONE. [Concomitant]
     Active Substance: PREDNISONE
     Indication: RHEUMATOID ARTHRITIS
  11. HUMIRA [Suspect]
     Active Substance: ADALIMUMAB
     Indication: RHEUMATOID ARTHRITIS
     Route: 058
     Dates: start: 201410, end: 20180110
  12. FOLIC ACID. [Concomitant]
     Active Substance: FOLIC ACID
     Indication: RHEUMATOID ARTHRITIS
  13. VITAMIN D [Concomitant]
     Active Substance: CHOLECALCIFEROL
     Indication: RHEUMATOID ARTHRITIS

REACTIONS (11)
  - Phantom pain [Not Recovered/Not Resolved]
  - Swelling [Unknown]
  - Pain [Recovered/Resolved]
  - Arthritis [Recovered/Resolved]
  - Procedural pain [Not Recovered/Not Resolved]
  - Postoperative thrombosis [Recovered/Resolved]
  - Neuropathy peripheral [Not Recovered/Not Resolved]
  - Exostosis [Recovered/Resolved]
  - Pulse abnormal [Recovered/Resolved]
  - Pain in extremity [Not Recovered/Not Resolved]
  - Neuralgia [Recovering/Resolving]

NARRATIVE: CASE EVENT DATE: 201707
